FAERS Safety Report 16525310 (Version 1)
Quarter: 2019Q3

REPORT INFORMATION
  Report Type: Other
  Country: US (occurrence: US)
  Receive Date: 20190702
  Receipt Date: 20190702
  Transmission Date: 20191004
  Serious: Yes (Life-Threatening)
  Sender: FDA-Public Use
  Company Number: US-STANDARD HOMEOPATHIC COMPANY-2070250

PATIENT
  Age: 35 Year
  Sex: Male

DRUGS (2)
  1. HYLAND^S LEG CRAMPS CAPLETS [Suspect]
     Active Substance: HOMEOPATHICS
     Indication: MUSCLE SPASMS
     Route: 048
     Dates: start: 20190411, end: 20190611
  2. HYLAND^S LEG CRAMPS CAPLETS [Suspect]
     Active Substance: HOMEOPATHICS
     Indication: ARTHRALGIA
     Route: 048
     Dates: start: 20190411, end: 20190611

REACTIONS (5)
  - Bradycardia [None]
  - Dizziness [Not Recovered/Not Resolved]
  - Auditory disorder [None]
  - Dyspnoea [None]
  - Palpitations [None]

NARRATIVE: CASE EVENT DATE: 20190611
